FAERS Safety Report 6116264-2 (Version None)
Quarter: 2009Q1

REPORT INFORMATION
  Report Type: 
  Country: None (occurrence: None)
  Receive Date: 20090314
  Receipt Date: 20081203
  Transmission Date: 20090719
  Serious: No
  Sender: FDA-Public Use
  Company Number: US-ABBOTT-08P-163-0491043-00

PATIENT
  Sex: Female
  Weight: 69.008 kg

DRUGS (3)
  1. HUMIRA [Suspect]
     Indication: CROHN'S DISEASE
     Route: 058
     Dates: start: 20080701, end: 20081101
  2. HUMIRA [Suspect]
     Route: 058
     Dates: start: 20081101
  3. HUMIRA [Suspect]
     Route: 058

REACTIONS (2)
  - ABDOMINAL PAIN LOWER [None]
  - MALAISE [None]
